FAERS Safety Report 23567477 (Version 1)
Quarter: 2024Q1

REPORT INFORMATION
  Report Type: Spontaneous
  Country: US (occurrence: US)
  Receive Date: 20240226
  Receipt Date: 20240226
  Transmission Date: 20240410
  Serious: No
  Sender: FDA-Public Use
  Company Number: US-AMGEN-USASP2024035899

PATIENT
  Age: 79 Year
  Sex: Female

DRUGS (2)
  1. MVASI [Suspect]
     Active Substance: BEVACIZUMAB-AWWB
     Indication: Lung neoplasm malignant
     Dosage: 100 MILLIGRAM (DOSE ORDERED: 425 MILLIGRAM)
     Route: 065
  2. MVASI [Suspect]
     Active Substance: BEVACIZUMAB-AWWB
     Dosage: 400 MILLIGRAM (DOSE ORDERED: 425 MILLIGRAM)
     Route: 065

REACTIONS (1)
  - Vascular access site pain [Unknown]

NARRATIVE: CASE EVENT DATE: 20240102
